FAERS Safety Report 16868951 (Version 1)
Quarter: 2019Q3

REPORT INFORMATION
  Report Type: Spontaneous
  Country: BR (occurrence: BR)
  Receive Date: 20190930
  Receipt Date: 20190930
  Transmission Date: 20191005
  Serious: Yes (Other)
  Sender: FDA-Public Use
  Company Number: BR-PFIZER INC-2019417011

PATIENT
  Age: 57 Year
  Sex: Female

DRUGS (2)
  1. XALATAN [Suspect]
     Active Substance: LATANOPROST
     Indication: OPEN ANGLE GLAUCOMA
     Dosage: UNK
  2. GLAUB [Concomitant]
     Active Substance: BRIMONIDINE TARTRATE

REACTIONS (2)
  - Mitral valve disease [Unknown]
  - Thyroid disorder [Unknown]
